FAERS Safety Report 4368205-6 (Version None)
Quarter: 2004Q2

REPORT INFORMATION
  Report Type: 
  Country: None (occurrence: None)
  Receive Date: 20040527
  Receipt Date: 20040514
  Transmission Date: 20050107
  Serious: Yes (Death, Hospitalization)
  Sender: FDA-Public Use
  Company Number: 2004-BL-00092BL

PATIENT
  Sex: Female

DRUGS (3)
  1. VIRAMUNE [Suspect]
     Indication: HIV INFECTION
     Dosage: 400 MG (200 MG, 1 IN 12 HR)
     Route: 048
  2. STAVUDINE (STAVUDINE) (KA) [Concomitant]
  3. LAMIVUDINE (LAMIVUDINE) (TA) [Concomitant]

REACTIONS (6)
  - COMA HEPATIC [None]
  - DRUG TOXICITY [None]
  - LIVER FUNCTION TEST ABNORMAL [None]
  - RASH [None]
  - TREATMENT NONCOMPLIANCE [None]
  - VOMITING [None]
